FAERS Safety Report 8048603-X (Version None)
Quarter: 2012Q1

REPORT INFORMATION
  Report Type: 
  Country: None (occurrence: None)
  Receive Date: 20120117
  Receipt Date: 20120113
  Transmission Date: 20120608
  Serious: Yes (Other)
  Sender: FDA-Public Use
  Company Number: US-PFIZER INC-2012010982

PATIENT
  Sex: Male

DRUGS (3)
  1. CORDARONE [Suspect]
     Indication: ATRIAL FIBRILLATION
  2. KAYEXALATE [Concomitant]
     Indication: BLOOD POTASSIUM INCREASED
     Dosage: UNK
  3. CORDARONE [Suspect]
     Indication: ARRHYTHMIA
     Dosage: UNK

REACTIONS (2)
  - THYROID DISORDER [None]
  - INSOMNIA [None]
